FAERS Safety Report 5803772-4 (Version None)
Quarter: 2008Q3

REPORT INFORMATION
  Report Type: 
  Country: None (occurrence: None)
  Receive Date: 20080708
  Receipt Date: 20080403
  Transmission Date: 20090109
  Serious: No
  Sender: FDA-Public Use
  Company Number: US-AMGEN-KDL270291

PATIENT
  Sex: Female

DRUGS (4)
  1. KINERET [Suspect]
     Indication: JUVENILE ARTHRITIS
     Route: 058
     Dates: start: 20080308
  2. METHOTREXATE [Concomitant]
     Route: 048
     Dates: start: 20080121
  3. PREDNISONE TAB [Concomitant]
  4. NEXIUM [Concomitant]

REACTIONS (7)
  - DIARRHOEA [None]
  - FATIGUE [None]
  - INJECTION SITE REACTION [None]
  - NAUSEA [None]
  - PALPITATIONS [None]
  - POOR QUALITY SLEEP [None]
  - PYREXIA [None]
